FAERS Safety Report 9102614 (Version 1)
Quarter: 2013Q1

REPORT INFORMATION
  Report Type: Spontaneous
  Country: US (occurrence: US)
  Receive Date: 20130219
  Receipt Date: 20130219
  Transmission Date: 20140127
  Serious: Yes (Hospitalization)
  Sender: FDA-Public Use
  Company Number: US-NOVOPROD-371118

PATIENT
  Age: 19 Month
  Sex: Female
  Weight: 13.61 kg

DRUGS (1)
  1. NORDITROPIN FLEXPRO [Suspect]
     Indication: HYPOPITUITARISM
     Dosage: 0.3 MG DAILY
     Route: 058
     Dates: start: 20111031

REACTIONS (1)
  - Blood sodium abnormal [Unknown]
